FAERS Safety Report 22237121 (Version 1)
Quarter: 2023Q2

REPORT INFORMATION
  Report Type: Spontaneous
  Country: US (occurrence: None)
  Receive Date: 20230421
  Receipt Date: 20230421
  Transmission Date: 20230721
  Serious: No
  Sender: FDA-Public Use
  Company Number: US-ROCHE-3261520

PATIENT
  Sex: Male

DRUGS (1)
  1. ESBRIET [Suspect]
     Active Substance: PIRFENIDONE
     Indication: Idiopathic pulmonary fibrosis
     Dosage: PT HAS BEEN ON FULL DOSE FOR SEVERAL WEEKS ;ONGOING: YES
     Route: 048

REACTIONS (1)
  - Rash pruritic [Not Recovered/Not Resolved]
